FAERS Safety Report 16805080 (Version 1)
Quarter: 2019Q3

REPORT INFORMATION
  Report Type: Report from Study
  Country: US (occurrence: US)
  Receive Date: 20190913
  Receipt Date: 20190913
  Transmission Date: 20191005
  Serious: Yes (Other)
  Sender: FDA-Public Use
  Company Number: US-AMGEN-USASL2019133913

PATIENT
  Age: 65 Year
  Sex: Female
  Weight: 72.6 kg

DRUGS (1)
  1. ENBREL [Suspect]
     Active Substance: ETANERCEPT
     Indication: GRANULOMA ANNULARE
     Dosage: UNK, Q2WK
     Route: 065
     Dates: start: 201812, end: 201901

REACTIONS (4)
  - Arthralgia [Recovered/Resolved]
  - Off label use [Unknown]
  - Myalgia [Recovered/Resolved]
  - Lupus-like syndrome [Recovered/Resolved]

NARRATIVE: CASE EVENT DATE: 201812
